FAERS Safety Report 12784356 (Version 1)
Quarter: 2016Q3

REPORT INFORMATION
  Report Type: Spontaneous
  Country: JP (occurrence: JP)
  Receive Date: 20160927
  Receipt Date: 20160927
  Transmission Date: 20161109
  Serious: Yes (Other)
  Sender: FDA-Public Use
  Company Number: JP-BEH-2010026728

PATIENT
  Sex: Male

DRUGS (3)
  1. SANGLOPOR [Suspect]
     Active Substance: HUMAN IMMUNOGLOBULIN G
     Indication: INFECTION
     Dosage: TWO BOTTLES OF SANGLOPOR IV INFUSION 2.5 G
     Route: 042
     Dates: start: 20100915, end: 20100915
  2. SOLU-MEDROL [Concomitant]
     Active Substance: METHYLPREDNISOLONE SODIUM SUCCINATE
     Indication: COLD SWEAT
  3. SOLU-MEDROL [Concomitant]
     Active Substance: METHYLPREDNISOLONE SODIUM SUCCINATE
     Indication: BLOOD PRESSURE DECREASED
     Route: 042
     Dates: start: 20100916

REACTIONS (3)
  - Blood pressure decreased [Recovered/Resolved]
  - Anaphylactic shock [Recovered/Resolved]
  - Cold sweat [Recovered/Resolved]

NARRATIVE: CASE EVENT DATE: 20100916
